FAERS Safety Report 4901553-7 (Version None)
Quarter: 2006Q1

REPORT INFORMATION
  Report Type: 
  Country: None (occurrence: None)
  Receive Date: 20060206
  Receipt Date: 20050203
  Transmission Date: 20060701
  Serious: No
  Sender: FDA-Public Use
  Company Number: US-BRISTOL-MYERS SQUIBB COMPANY-12848578

PATIENT
  Age: 73 Year
  Sex: Male
  Weight: 119 kg

DRUGS (5)
  1. TAXOL [Suspect]
     Indication: NON-SMALL CELL LUNG CANCER
     Dosage: ADMINISTERED OVER 3 HOURS
     Dates: start: 20050202, end: 20050202
  2. DEXAMETHASONE TAB [Concomitant]
     Indication: PREMEDICATION
     Dosage: TAKEN 12 HR AND 6 HR PRIOR TO TREATMENT
     Route: 048
  3. DEXAMETHASONE TAB [Concomitant]
     Dosage: IVPB 45 MINUTES PRIOR TO TREATMENT
     Route: 042
  4. DIPHENHYDRAMINE HCL [Concomitant]
     Indication: PREMEDICATION
     Dosage: ADMINISTERED 30 MIN PRIOR TO TREATMENT
     Route: 042
  5. CIMETIDINE [Concomitant]
     Indication: PREMEDICATION
     Dosage: ADMINISTERED 30 MIN PRIOR TO TREATMENT.
     Route: 042

REACTIONS (2)
  - BACK PAIN [None]
  - DYSPNOEA [None]
